FAERS Safety Report 6269541-9 (Version None)
Quarter: 2009Q3

REPORT INFORMATION
  Report Type: 
  Country: None (occurrence: None)
  Receive Date: 20090714
  Receipt Date: 20090702
  Transmission Date: 20100115
  Serious: Yes (Hospitalization)
  Sender: FDA-Public Use
  Company Number: 1-19041869

PATIENT
  Sex: Female

DRUGS (3)
  1. CIPROFLOXACIN HCL [Suspect]
     Indication: RESPIRATORY TRACT INFECTION
     Dosage: ORAL
     Route: 048
  2. PERINDOPRIL [Concomitant]
  3. INDAPAMIDE [Concomitant]

REACTIONS (7)
  - BLOOD CREATININE INCREASED [None]
  - BLOOD UREA INCREASED [None]
  - DERMATITIS BULLOUS [None]
  - DRUG ERUPTION [None]
  - HAEMOGLOBIN DECREASED [None]
  - PNEUMONIA PRIMARY ATYPICAL [None]
  - SKIN HYPERPIGMENTATION [None]
